FAERS Safety Report 5002905-X (Version None)
Quarter: 2006Q2

REPORT INFORMATION
  Report Type: 
  Country: None (occurrence: None)
  Receive Date: 20060516
  Receipt Date: 20060505
  Transmission Date: 20061013
  Serious: Yes (Congenital Anomaly)
  Sender: FDA-Public Use
  Company Number: TR-ABBOTT-06P-161-0332583-00

PATIENT
  Age: 38 Week
  Sex: Male

DRUGS (2)
  1. VALPROATE SODIUM [Suspect]
     Indication: DRUG EXPOSURE DURING PREGNANCY
     Route: 065
  2. CARBAMAZEPINE [Suspect]
     Indication: DRUG EXPOSURE DURING PREGNANCY
     Route: 065

REACTIONS (7)
  - BODY HEIGHT BELOW NORMAL [None]
  - CONGENITAL NAIL DISORDER [None]
  - DRUG EXPOSURE DURING PREGNANCY [None]
  - FOETAL VALPROATE SYNDROME [None]
  - LIMB REDUCTION DEFECT [None]
  - NAIL DISORDER [None]
  - NEURODEVELOPMENTAL DISORDER [None]
